FAERS Safety Report 21445459 (Version 2)
Quarter: 2022Q4

REPORT INFORMATION
  Report Type: Spontaneous
  Country: MX (occurrence: MX)
  Receive Date: 20221012
  Receipt Date: 20221017
  Transmission Date: 20230112
  Serious: No
  Sender: FDA-Public Use
  Company Number: MX-BAYER-2022A140919

PATIENT
  Age: 16 Month
  Sex: Male
  Weight: 8.8 kg

DRUGS (1)
  1. ULTRAVIST [Suspect]
     Active Substance: IOPROMIDE
     Indication: Diagnostic procedure
     Dosage: UNK UNK, ONCE
     Route: 042

REACTIONS (1)
  - Rash [Recovered/Resolved]
